FAERS Safety Report 21077015 (Version 8)
Quarter: 2025Q3

REPORT INFORMATION
  Report Type: Report from Study
  Country: US (occurrence: US)
  Receive Date: 20220713
  Receipt Date: 20250910
  Transmission Date: 20251021
  Serious: Yes (Other)
  Sender: TAKEDA
  Company Number: US-TAKEDA-US202033212

PATIENT
  Sex: Female

DRUGS (6)
  1. HUMAN IMMUNOGLOBULIN G [Suspect]
     Active Substance: HUMAN IMMUNOGLOBULIN G
     Indication: Hypogammaglobulinaemia
  2. HUMAN IMMUNOGLOBULIN G [Suspect]
     Active Substance: HUMAN IMMUNOGLOBULIN G
  3. GAMMAGARD LIQUID [Suspect]
     Active Substance: HUMAN IMMUNOGLOBULIN G
     Indication: Hypogammaglobulinaemia
     Dosage: 35 GRAM, Q4WEEKS
  4. GAMMAGARD LIQUID [Suspect]
     Active Substance: HUMAN IMMUNOGLOBULIN G
     Indication: Primary immunodeficiency syndrome
  5. GAMMAGARD LIQUID [Suspect]
     Active Substance: HUMAN IMMUNOGLOBULIN G
     Indication: Immunodeficiency common variable
  6. COVID-19 VACCINE NOS [Suspect]
     Active Substance: COVID-19 VACCINE
     Indication: COVID-19 immunisation

REACTIONS (27)
  - Gastroenteritis salmonella [Unknown]
  - Exophthalmos [Unknown]
  - Hepatic fibrosis [Unknown]
  - Swelling [Unknown]
  - Vaginal infection [Unknown]
  - COVID-19 [Unknown]
  - Bronchitis [Recovered/Resolved]
  - Sinus disorder [Unknown]
  - Liver function test increased [Unknown]
  - Infusion site erythema [Unknown]
  - Chills [Unknown]
  - Pyrexia [Unknown]
  - Cough [Unknown]
  - Chest discomfort [Unknown]
  - Chest pain [Unknown]
  - Headache [Unknown]
  - Eye disorder [Unknown]
  - Gastrointestinal disorder [Recovered/Resolved]
  - Thyroid disorder [Unknown]
  - Adrenal disorder [Unknown]
  - Urinary tract infection [Unknown]
  - Vein disorder [Unknown]
  - Oropharyngeal pain [Recovered/Resolved]
  - Diarrhoea [Unknown]
  - Malaise [Unknown]
  - Nasopharyngitis [Unknown]
  - Decreased appetite [Unknown]
